FAERS Safety Report 17039284 (Version 1)
Quarter: 2019Q4

REPORT INFORMATION
  Report Type: Spontaneous
  Country: US (occurrence: US)
  Receive Date: 20191115
  Receipt Date: 20191115
  Transmission Date: 20200122
  Serious: No
  Sender: FDA-Public Use
  Company Number: US-SA-2019SA313693

PATIENT
  Age: 68 Year
  Sex: Female

DRUGS (10)
  1. ATORVASTATIN [Concomitant]
     Active Substance: ATORVASTATIN
  2. METHOTREXATE. [Concomitant]
     Active Substance: METHOTREXATE
  3. PREDNISONE. [Concomitant]
     Active Substance: PREDNISONE
  4. HUMIRA [Concomitant]
     Active Substance: ADALIMUMAB
  5. TYLENOL 8HR [Concomitant]
     Active Substance: ACETAMINOPHEN
  6. VITAMIN D [VITAMIN D NOS] [Concomitant]
     Active Substance: VITAMIN D NOS
  7. KEVZARA [Suspect]
     Active Substance: SARILUMAB
     Dosage: 200 MG, QOW
     Route: 058
     Dates: start: 20190620
  8. LEVOTHYROXINE SODIUM. [Concomitant]
     Active Substance: LEVOTHYROXINE SODIUM
  9. FOLIC ACID. [Concomitant]
     Active Substance: FOLIC ACID
  10. IBUPROFEN. [Concomitant]
     Active Substance: IBUPROFEN

REACTIONS (1)
  - Arthralgia [Unknown]
